FAERS Safety Report 7604356-8 (Version None)
Quarter: 2011Q3

REPORT INFORMATION
  Report Type: 
  Country: None (occurrence: None)
  Receive Date: 20110712
  Receipt Date: 20110628
  Transmission Date: 20111222
  Serious: Yes (Other)
  Sender: FDA-Public Use
  Company Number: PHHY2011BR58525

PATIENT
  Sex: Female
  Weight: 58 kg

DRUGS (2)
  1. DIOVAN [Suspect]
     Indication: MOVEMENT DISORDER
     Dosage: 160 MG, UNK
     Route: 048
     Dates: start: 20110512
  2. DIOVAN [Suspect]
     Indication: CHEST PAIN
     Dosage: 80 MG DAILY
     Route: 048
     Dates: start: 20090201

REACTIONS (6)
  - OEDEMA PERIPHERAL [None]
  - SPEECH DISORDER [None]
  - VENTRICULAR HYPERTROPHY [None]
  - CONDITION AGGRAVATED [None]
  - CHEST PAIN [None]
  - JOINT SWELLING [None]
